FAERS Safety Report 7291708-1 (Version None)
Quarter: 2011Q1

REPORT INFORMATION
  Report Type: 
  Country: None (occurrence: None)
  Receive Date: 20110209
  Receipt Date: 20110209
  Transmission Date: 20110831
  Serious: Yes (Hospitalization)
  Sender: FDA-Public Use
  Company Number: None

PATIENT
  Sex: Female
  Weight: 48.5349 kg

DRUGS (1)
  1. FOSAMAX [Suspect]
     Indication: OSTEOPOROSIS
     Dosage: 1 MORNING A WEEK PO
     Route: 048
     Dates: start: 20000101, end: 20081009

REACTIONS (4)
  - POST PROCEDURAL COMPLICATION [None]
  - FALL [None]
  - HIP FRACTURE [None]
  - FEMUR FRACTURE [None]
